FAERS Safety Report 10736426 (Version 1)
Quarter: 2015Q1

REPORT INFORMATION
  Report Type: Spontaneous
  Country: US (occurrence: US)
  Receive Date: 20150126
  Receipt Date: 20150126
  Transmission Date: 20150721
  Serious: Yes (Other)
  Sender: FDA-Public Use
  Company Number: US-ASTRAZENECA-2015SE05474

PATIENT
  Sex: Male

DRUGS (1)
  1. ENTOCORT EC [Suspect]
     Active Substance: BUDESONIDE
     Indication: ARTHRITIS ENTEROPATHIC
     Route: 048
     Dates: start: 2001

REACTIONS (9)
  - Scar [Unknown]
  - Inflammation [Unknown]
  - Drug dose omission [Recovered/Resolved]
  - Pruritus [Recovered/Resolved]
  - Off label use [Not Recovered/Not Resolved]
  - Dry skin [Recovered/Resolved]
  - Formication [Recovered/Resolved]
  - Intestinal stenosis [Recovered/Resolved]
  - Crohn^s disease [Recovered/Resolved]

NARRATIVE: CASE EVENT DATE: 2002
